FAERS Safety Report 10768980 (Version 3)
Quarter: 2015Q1

REPORT INFORMATION
  Report Type: Spontaneous
  Country: JP (occurrence: JP)
  Receive Date: 20150206
  Receipt Date: 20150318
  Transmission Date: 20150721
  Serious: Yes (Hospitalization)
  Sender: FDA-Public Use
  Company Number: JP-ELI_LILLY_AND_COMPANY-JP201501009780

PATIENT
  Age: 2 Year
  Sex: Male

DRUGS (1)
  1. ZYPREXA [Suspect]
     Active Substance: OLANZAPINE
     Indication: ACCIDENTAL EXPOSURE TO PRODUCT
     Dosage: 17.5 MG, 2.5MGX7 TABLETS
     Route: 048
     Dates: start: 20150125, end: 20150125

REACTIONS (4)
  - Somnolence [Recovering/Resolving]
  - Accidental exposure to product [Recovered/Resolved]
  - Agitation [Recovering/Resolving]
  - Sedation [Recovered/Resolved]

NARRATIVE: CASE EVENT DATE: 20150125
